FAERS Safety Report 13949766 (Version 1)
Quarter: 2017Q3

REPORT INFORMATION
  Report Type: Spontaneous
  Country: US (occurrence: US)
  Receive Date: 20170908
  Receipt Date: 20170908
  Transmission Date: 20171128
  Serious: No
  Sender: FDA-Public Use
  Company Number: US-ROCHE-1154893

PATIENT
  Age: 30 Year
  Sex: Female

DRUGS (1)
  1. RITUXAN [Suspect]
     Active Substance: RITUXIMAB
     Indication: NON-HODGKIN^S LYMPHOMA
     Route: 042

REACTIONS (3)
  - Dysphonia [Recovered/Resolved]
  - Infusion related reaction [Not Recovered/Not Resolved]
  - Throat tightness [Recovered/Resolved]
